FAERS Safety Report 23991898 (Version 1)
Quarter: 2024Q2

REPORT INFORMATION
  Report Type: Report from Study
  Country: CA (occurrence: CA)
  Receive Date: 20240620
  Receipt Date: 20240620
  Transmission Date: 20240716
  Serious: Yes (Other)
  Sender: FDA-Public Use
  Company Number: CA-ABBVIE-5802766

PATIENT
  Age: 78 Year
  Sex: Male

DRUGS (4)
  1. RINVOQ [Suspect]
     Active Substance: UPADACITINIB
     Indication: Dermatitis atopic
     Route: 048
     Dates: start: 20240422
  2. KEFLEX [Concomitant]
     Active Substance: CEPHALEXIN
     Indication: Tooth infection
     Dates: start: 2024
  3. XARELTO [Concomitant]
     Active Substance: RIVAROXABAN
     Indication: Product used for unknown indication
  4. ASPIRIN [Concomitant]
     Active Substance: ASPIRIN
     Indication: Product used for unknown indication

REACTIONS (15)
  - Gastrointestinal haemorrhage [Not Recovered/Not Resolved]
  - Faeces discoloured [Unknown]
  - Tooth infection [Unknown]
  - Injury [Recovered/Resolved]
  - Abdominal pain [Unknown]
  - Haemoptysis [Unknown]
  - Renal impairment [Unknown]
  - Hypotension [Unknown]
  - Acute kidney injury [Unknown]
  - Diarrhoea [Unknown]
  - Cough [Unknown]
  - Skin laceration [Unknown]
  - Dyspnoea [Unknown]
  - Presyncope [Unknown]
  - Dizziness [Unknown]

NARRATIVE: CASE EVENT DATE: 20240101
